FAERS Safety Report 16598241 (Version 1)
Quarter: 2019Q3

REPORT INFORMATION
  Report Type: Spontaneous
  Country: DE (occurrence: DE)
  Receive Date: 20190719
  Receipt Date: 20190719
  Transmission Date: 20191004
  Serious: Yes (Hospitalization)
  Sender: FDA-Public Use
  Company Number: DE-PFIZER INC-2019302333

PATIENT
  Age: 68 Year
  Sex: Female
  Weight: 68 kg

DRUGS (15)
  1. CALCIUM FOLINATE [Suspect]
     Active Substance: LEUCOVORIN CALCIUM
     Dosage: UNK
     Route: 042
     Dates: end: 20171219
  2. METOPROLOL. [Concomitant]
     Active Substance: METOPROLOL
     Dosage: 23.75 MG, 2X/DAY (23.75 MG, 1-0-1-0, TABLET)
     Route: 048
  3. CETUXIMAB. [Suspect]
     Active Substance: CETUXIMAB
     Dosage: UNK
     Route: 042
     Dates: end: 20171219
  4. MAGNESIUM [Concomitant]
     Active Substance: MAGNESIUM
     Dosage: 1 DF, AS NEEDED (1 SACHET, AS NEEDED, POWDER)
     Route: 048
  5. HYDROCHLOROTHIAZID [Concomitant]
     Active Substance: HYDROCHLOROTHIAZIDE
     Dosage: 12.5 MG, 1X/DAY (12.5 MG, 1-0-0-0, TABLET)
     Route: 048
  6. LEVOTHYROXINE SODIUM. [Concomitant]
     Active Substance: LEVOTHYROXINE SODIUM
     Dosage: 50 ?G, 1-0-0-0, TABLET
     Route: 048
  7. IRENAT [Concomitant]
     Active Substance: SODIUM PERCHLORATE
     Dosage: 300 MG/ML, 1-1-1-0 EVERY 20?, DROPS
     Route: 048
  8. MOVICOL [Concomitant]
     Active Substance: POLYETHYLENE GLYCOL 3350\POTASSIUM CHLORIDE\SODIUM BICARBONATE\SODIUM CHLORIDE
     Dosage: 1 DF, AS NEEDED (1 SACHET AS NEEDED)
     Route: 048
  9. PANTOPRAZOLE [Concomitant]
     Active Substance: PANTOPRAZOLE
     Dosage: 40 MG, 1X/DAY (40 MG, 1-0-0-0, TABLETS)
     Route: 048
  10. ONDANSETRON [Concomitant]
     Active Substance: ONDANSETRON
     Dosage: 8 MG, 1-0-1-0, TABLET
     Route: 048
  11. IRINOTECAN HCL [Suspect]
     Active Substance: IRINOTECAN HYDROCHLORIDE
     Dosage: UNK
     Route: 042
     Dates: end: 20171219
  12. FLUOROURACIL. [Suspect]
     Active Substance: FLUOROURACIL
     Dosage: UNK
     Route: 042
     Dates: end: 20171219
  13. POTASSIUM [Concomitant]
     Active Substance: POTASSIUM
     Dosage: ACCORDING TO VALUE, EFFERVESCENT TABLETS
     Route: 048
  14. DEXAMETHASONE. [Concomitant]
     Active Substance: DEXAMETHASONE
     Dosage: 8 MG, 1X/DAY (8 MG, 1-0-0-0, TABLET)
     Route: 048
  15. RAMIPRIL. [Concomitant]
     Active Substance: RAMIPRIL
     Dosage: 2.5 MG, 1X/DAY (2.5 MG, 1-0-0-0, TABLET)
     Route: 048

REACTIONS (3)
  - General physical health deterioration [Unknown]
  - Pyrexia [Unknown]
  - Arrhythmia [Unknown]
